FAERS Safety Report 4508916-2 (Version None)
Quarter: 2004Q4

REPORT INFORMATION
  Report Type: 
  Country: None (occurrence: None)
  Receive Date: 20041123
  Receipt Date: 20041122
  Transmission Date: 20050328
  Serious: Yes (Hospitalization)
  Sender: FDA-Public Use
  Company Number: US-GLAXOSMITHKLINE-A0534871A

PATIENT
  Age: 34 Year
  Sex: Female

DRUGS (2)
  1. PAXIL [Suspect]
     Indication: GENERALISED ANXIETY DISORDER
     Dosage: 25MG PER DAY
     Route: 048
     Dates: start: 20041015
  2. PAXIL [Suspect]
     Dosage: 12.5MG PER DAY
     Route: 048

REACTIONS (4)
  - ANXIETY [None]
  - EXTRASYSTOLES [None]
  - HEART RATE IRREGULAR [None]
  - MASTITIS [None]
